FAERS Safety Report 5233928-3 (Version None)
Quarter: 2007Q1

REPORT INFORMATION
  Report Type: 
  Country: None (occurrence: None)
  Receive Date: 20070208
  Receipt Date: 20070206
  Transmission Date: 20070707
  Serious: Yes (Death)
  Sender: FDA-Public Use
  Company Number: SE-SANOFI-SYNTHELABO-F01200700162

PATIENT
  Sex: Male

DRUGS (10)
  1. DOLCONTIN [Suspect]
     Indication: DRUG USE FOR UNKNOWN INDICATION
     Route: 065
     Dates: start: 20061215
  2. CITODON [Suspect]
     Indication: DRUG USE FOR UNKNOWN INDICATION
     Dates: start: 20061015
  3. CIPROFLOXACIN HYDROCHLORIDE [Suspect]
     Indication: DRUG USE FOR UNKNOWN INDICATION
     Route: 065
     Dates: start: 20061127
  4. UNPECIFIED DRUG [Suspect]
     Indication: DRUG USE FOR UNKNOWN INDICATION
     Route: 048
  5. NOVOMIX [Suspect]
     Indication: DRUG USE FOR UNKNOWN INDICATION
     Route: 065
     Dates: start: 20050615
  6. GEMCITABINE [Suspect]
     Indication: PANCREATIC CARCINOMA METASTATIC
     Route: 042
     Dates: start: 20060224, end: 20061220
  7. XELODA [Suspect]
     Indication: DRUG USE FOR UNKNOWN INDICATION
     Dosage: UNK
     Route: 065
     Dates: start: 20061221
  8. ERLOTINIB [Suspect]
     Indication: PANCREATIC CARCINOMA METASTATIC
     Route: 048
     Dates: start: 20060224, end: 20061220
  9. OXALIPLATIN [Suspect]
     Indication: DRUG USE FOR UNKNOWN INDICATION
     Dosage: UNK
     Route: 065
     Dates: start: 20061221
  10. PLACEBO [Suspect]
     Indication: PANCREATIC CARCINOMA METASTATIC
     Route: 042
     Dates: start: 20060224, end: 20061018

REACTIONS (1)
  - CARDIAC ARREST [None]
